FAERS Safety Report 6448240-4 (Version None)
Quarter: 2009Q4

REPORT INFORMATION
  Report Type: 
  Country: None (occurrence: None)
  Receive Date: 20091120
  Receipt Date: 20091110
  Transmission Date: 20100525
  Serious: Yes (Disabling, Other)
  Sender: FDA-Public Use
  Company Number: US-BAYER-200939236NA

PATIENT
  Sex: Female

DRUGS (10)
  1. MAGNEVIST [Suspect]
     Indication: NUCLEAR MAGNETIC RESONANCE IMAGING BRAIN
     Dates: start: 20001002, end: 20001002
  2. MAGNEVIST [Suspect]
     Dates: start: 20001104, end: 20001104
  3. MAGNEVIST [Suspect]
     Dates: start: 20001212, end: 20001212
  4. MAGNEVIST [Suspect]
     Dates: start: 20050707, end: 20050707
  5. OPTIMARK [Suspect]
     Indication: NUCLEAR MAGNETIC RESONANCE IMAGING BRAIN
     Dates: start: 20060203, end: 20060203
  6. OPTIMARK [Suspect]
     Dates: start: 20060922, end: 20060922
  7. OMNISCAN [Suspect]
     Indication: DRUG USE FOR UNKNOWN INDICATION
  8. MULTIHANCE [Suspect]
     Indication: DRUG USE FOR UNKNOWN INDICATION
  9. PROHANCE [Suspect]
     Indication: DRUG USE FOR UNKNOWN INDICATION
  10. UNIDENTIFIED GADOLINIUM BASED CONTRAST AGENT [Suspect]
     Indication: SCAN BRAIN
     Dates: start: 20000829, end: 20000829

REACTIONS (8)
  - DEFORMITY [None]
  - GENERAL PHYSICAL HEALTH DETERIORATION [None]
  - MOBILITY DECREASED [None]
  - MUSCLE CONTRACTURE [None]
  - NEPHROGENIC SYSTEMIC FIBROSIS [None]
  - PAIN [None]
  - SCAR [None]
  - SKIN FIBROSIS [None]
